FAERS Safety Report 12258368 (Version 2)
Quarter: 2016Q4

REPORT INFORMATION
  Report Type: Spontaneous
  Country: JP (occurrence: JP)
  Receive Date: 20160412
  Receipt Date: 20161031
  Transmission Date: 20170207
  Serious: Yes (Death)
  Sender: FDA-Public Use
  Company Number: JP-TEVA-649038ISR

PATIENT
  Age: 88 Year
  Sex: Male

DRUGS (10)
  1. E-FEN BUCCAL [Suspect]
     Active Substance: FENTANYL CITRATE
     Indication: BREAKTHROUGH PAIN
     Dosage: AS NEEDED (TEN DOSES WERE PRESCRIBED)
     Route: 002
     Dates: start: 20150425
  2. FENTOS [Concomitant]
     Active Substance: FENTANYL
     Indication: CANCER PAIN
     Dosage: 1 MILLIGRAM DAILY;
     Route: 062
     Dates: start: 20150425
  3. MAGNESIUM OXIDE. [Concomitant]
     Active Substance: MAGNESIUM OXIDE
     Indication: CONSTIPATION
     Dosage: 2 MILLIGRAM DAILY;
     Route: 048
     Dates: end: 20150610
  4. E-FEN BUCCAL [Suspect]
     Active Substance: FENTANYL CITRATE
     Dosage: AS NEEDED (TEN DOSES WERE PRESCRIBED)
     Route: 002
     Dates: start: 20150601, end: 20150610
  5. E-FEN BUCCAL [Suspect]
     Active Substance: FENTANYL CITRATE
     Dosage: 100 MICROGRAM DAILY;
     Route: 002
     Dates: start: 20150611, end: 20150614
  6. URIEF [Concomitant]
     Active Substance: SILODOSIN
     Indication: BENIGN PROSTATIC HYPERPLASIA
     Dosage: 8 MILLIGRAM DAILY;
     Route: 048
     Dates: end: 20150610
  7. E-FEN BUCCAL [Suspect]
     Active Substance: FENTANYL CITRATE
     Dosage: AS NEEDED (TEN DOSES WERE PRESCRIBED)
     Route: 002
     Dates: start: 20150610
  8. NAUZELIN [Concomitant]
     Active Substance: DOMPERIDONE
     Indication: GASTRIC CANCER
     Dosage: 30 MILLIGRAM DAILY;
     Route: 048
     Dates: end: 20150610
  9. AVOLVE [Concomitant]
     Active Substance: DUTASTERIDE
     Indication: BENIGN PROSTATIC HYPERPLASIA
     Dosage: .5 MILLIGRAM DAILY;
     Route: 048
     Dates: end: 20150610
  10. PARIET [Concomitant]
     Active Substance: RABEPRAZOLE SODIUM
     Indication: GASTRIC CANCER
     Dosage: 10 MILLIGRAM DAILY;
     Route: 048
     Dates: end: 20150610

REACTIONS (1)
  - Gastric cancer [Fatal]

NARRATIVE: CASE EVENT DATE: 20150615
